FAERS Safety Report 6823380-6 (Version None)
Quarter: 2010Q3

REPORT INFORMATION
  Report Type: 
  Country: None (occurrence: None)
  Receive Date: 20100708
  Receipt Date: 20100628
  Transmission Date: 20110219
  Serious: Yes (Death)
  Sender: FDA-Public Use
  Company Number: FR-WATSON-2010-08757

PATIENT
  Age: 50 Year
  Sex: Male

DRUGS (6)
  1. DEXAMETHASONE (WATSON LABORATORIES) [Suspect]
     Indication: T-CELL LYMPHOMA
     Dosage: UNK
     Route: 042
  2. ETOPOSIDE (WATSON LABORATORIES) [Suspect]
     Indication: T-CELL LYMPHOMA
  3. CYCLOPHOSPHAMIDE [Suspect]
     Indication: T-CELL LYMPHOMA
     Dosage: UNK
  4. ADRIAMYCIN PFS [Suspect]
     Indication: T-CELL LYMPHOMA
     Dosage: UNK
  5. VINCRISTINE [Suspect]
     Indication: T-CELL LYMPHOMA
     Dosage: UNK
  6. METHOTREXATE [Suspect]
     Indication: T-CELL LYMPHOMA
     Dosage: UNK

REACTIONS (2)
  - SEPTIC SHOCK [None]
  - TUMOUR LYSIS SYNDROME [None]
